FAERS Safety Report 8883154 (Version 1)
Quarter: 2012Q4

REPORT INFORMATION
  Report Type: Report from Study
  Country: DE (occurrence: DE)
  Receive Date: 20121102
  Receipt Date: 20121102
  Transmission Date: 20130627
  Serious: Yes (Other)
  Sender: FDA-Public Use
  Company Number: DE-ROCHE-751203

PATIENT
  Age: 55 Year
  Sex: Male
  Weight: 77 kg

DRUGS (15)
  1. RITUXIMAB [Suspect]
     Indication: CHRONIC LYMPHOCYTIC LEUKAEMIA
     Route: 042
  2. RITUXIMAB [Suspect]
     Dosage: DOSE REDUCED, DATE OF LAST DOSE PRIOR TO ONSET OF SAE: 29 NOV 2010.
     Route: 042
  3. FLUDARABINE [Suspect]
     Indication: CHRONIC LYMPHOCYTIC LEUKAEMIA
     Route: 042
  4. FLUDARABINE [Suspect]
     Dosage: DOSE REDUCED.LAST DOSE PRIOR TO ONSET OF SAE: 30 NOV 2010.
     Route: 042
  5. CYCLOPHOSPHAMIDE [Suspect]
     Indication: CHRONIC LYMPHOCYTIC LEUKAEMIA
     Route: 042
  6. CYCLOPHOSPHAMIDE [Suspect]
     Dosage: DOSE REDUCED, LAST DOSE PRIOR TO ONSET OF SAE: 30 NOV 2010.
     Route: 042
  7. VALTREX [Concomitant]
     Route: 065
     Dates: start: 20100906, end: 20110621
  8. OMEPRAZOLE [Concomitant]
     Route: 065
     Dates: start: 20101103, end: 20110621
  9. COTRIM FORTE [Concomitant]
     Route: 065
     Dates: start: 20101115, end: 20110621
  10. ALLOPURINOL [Concomitant]
     Route: 065
     Dates: start: 20100629, end: 20101022
  11. UNACID [Concomitant]
     Route: 065
     Dates: start: 20101206, end: 20101213
  12. CLARITHROMYCIN [Concomitant]
     Route: 065
     Dates: start: 20101206, end: 20101213
  13. GAMUNEX [Concomitant]
     Route: 065
     Dates: start: 20090515
  14. NEUPOGEN [Concomitant]
     Route: 065
     Dates: start: 20101206, end: 20101226
  15. ERYTHROCYTE CONCENTRATE [Concomitant]

REACTIONS (2)
  - Transaminases increased [Not Recovered/Not Resolved]
  - Laboratory test abnormal [Recovered/Resolved]
